FAERS Safety Report 13475790 (Version 4)
Quarter: 2017Q2

REPORT INFORMATION
  Report Type: Report from Study
  Country: US (occurrence: US)
  Receive Date: 20170425
  Receipt Date: 20170601
  Transmission Date: 20170830
  Serious: Yes (Other)
  Sender: FDA-Public Use
  Company Number: US-MALLINCKRODT-T201701694

PATIENT
  Sex: Female

DRUGS (2)
  1. REPOSITORY CORTICOTROPIN INJECTION [Suspect]
     Active Substance: CORTICOTROPIN
     Dosage: 40 UNITS, TWICE WEEKLY
     Route: 058
  2. REPOSITORY CORTICOTROPIN INJECTION [Suspect]
     Active Substance: CORTICOTROPIN
     Indication: SARCOIDOSIS
     Dosage: 80 UNITS/ 1 ML, TWICE WEEKLY (TUES/THURSDAY)
     Route: 058
     Dates: start: 20170324

REACTIONS (3)
  - Injection site bruising [Not Recovered/Not Resolved]
  - Staphylococcal infection [Recovering/Resolving]
  - Nausea [Not Recovered/Not Resolved]
